FAERS Safety Report 20885649 (Version 2)
Quarter: 2022Q2

REPORT INFORMATION
  Report Type: Spontaneous
  Country: US (occurrence: US)
  Receive Date: 20220527
  Receipt Date: 20220531
  Transmission Date: 20220720
  Serious: Yes (Hospitalization, Other)
  Sender: FDA-Public Use
  Company Number: US-LUNDBECK-DKLU3048109

PATIENT
  Sex: Female
  Weight: 36.9 kg

DRUGS (4)
  1. ESCITALOPRAM OXALATE [Suspect]
     Active Substance: ESCITALOPRAM OXALATE
     Indication: Anxiety
     Dosage: UNK
     Route: 065
  2. ESCITALOPRAM OXALATE [Suspect]
     Active Substance: ESCITALOPRAM OXALATE
     Dosage: 20 MG
     Route: 065
  3. RANITIDINE [Suspect]
     Active Substance: RANITIDINE
     Indication: Product used for unknown indication
     Route: 065
  4. SENNA [Suspect]
     Active Substance: SENNA LEAF\SENNOSIDES\SENNOSIDES A AND B
     Indication: Product used for unknown indication
     Route: 065

REACTIONS (9)
  - Neutropenia [Unknown]
  - Hypophosphataemia [Unknown]
  - Hypotension [Recovering/Resolving]
  - Orthostatic hypotension [Unknown]
  - Bradycardia [Recovering/Resolving]
  - Off label use [Unknown]
  - Blood pressure decreased [Unknown]
  - Abnormal behaviour [Unknown]
  - Drug ineffective [Unknown]
